FAERS Safety Report 7800601-4 (Version None)
Quarter: 2011Q4

REPORT INFORMATION
  Report Type: 
  Country: None (occurrence: None)
  Receive Date: 20111006
  Receipt Date: 20110926
  Transmission Date: 20120403
  Serious: Yes (Other)
  Sender: FDA-Public Use
  Company Number: US-BAYER-2011-069212

PATIENT
  Age: 19 Year
  Sex: Female
  Weight: 68.2 kg

DRUGS (4)
  1. YAZ [Suspect]
     Indication: PREMENSTRUAL SYNDROME
  2. DROSPIRENONE AND ETHINYL ESTRADIOL [Suspect]
     Indication: ACNE
     Dosage: UNK
     Dates: start: 20071101, end: 20100201
  3. YAZ [Suspect]
     Indication: ACNE
     Dosage: UNK
     Dates: start: 20071101, end: 20100201
  4. DROSPIRENONE AND ETHINYL ESTRADIOL [Suspect]
     Indication: PREMENSTRUAL SYNDROME

REACTIONS (3)
  - ABDOMINAL PAIN UPPER [None]
  - CHOLECYSTITIS INFECTIVE [None]
  - CHOLECYSTITIS CHRONIC [None]
